FAERS Safety Report 9971165 (Version 1)
Quarter: 2014Q1

REPORT INFORMATION
  Report Type: Report from Study
  Country: US (occurrence: US)
  Receive Date: 20140306
  Receipt Date: 20140306
  Transmission Date: 20141002
  Serious: No
  Sender: FDA-Public Use
  Company Number: US-ABBVIE-13P-163-1148082-00

PATIENT
  Age: 40 Year
  Sex: Female

DRUGS (24)
  1. HUMIRA [Suspect]
     Indication: RHEUMATOID ARTHRITIS
     Dates: start: 20130802
  2. DICYCLOMINE [Concomitant]
     Indication: GASTROINTESTINAL MOTILITY DISORDER
  3. SINGULAIR [Concomitant]
     Indication: ASTHMA
     Dosage: 10 MG DAILY
  4. PROPRANOL [Concomitant]
     Indication: HEADACHE
  5. FENTANYL [Concomitant]
     Indication: PAIN
     Route: 062
  6. CLARINEX [Concomitant]
     Indication: HYPERSENSITIVITY
     Dosage: 5 MG DAILY
  7. NORTRIPTYLINE HCL [Concomitant]
     Indication: FIBROMYALGIA
     Dosage: 200 MG DAILY: EXTENDED RELEASE
  8. PREDNISONE [Concomitant]
     Indication: ARTHRITIS
     Dosage: 5 MG DAILY
  9. METHOTREXATE [Concomitant]
     Indication: RHEUMATOID ARTHRITIS
     Dosage: 25 MG, 5 TABS WEEKLY
  10. NEXIUM [Concomitant]
     Indication: GASTROOESOPHAGEAL REFLUX DISEASE
     Dosage: 40 MG DAILY
  11. LORAZEPAM [Concomitant]
     Indication: ANXIETY
     Dosage: 0.5 MG DAILY
  12. JOLESSA [Concomitant]
     Indication: CONTRACEPTION
     Dosage: 1 TAB DAILY
  13. PROMETHAZINE [Concomitant]
     Indication: NAUSEA
     Dosage: 4-6 HOURS
  14. BUTALB-ACETAMIN-CAFF [Concomitant]
     Indication: HEADACHE
     Dosage: 10-325 MG EVERY 4-6 HOURS
  15. NORCO [Concomitant]
     Indication: PAIN
     Dosage: 7.5/325 MG, 1 TAB FOUR TIMES DAILY
  16. ALBUTEROL [Concomitant]
     Indication: ASTHMA
     Route: 055
  17. METAXALONE [Concomitant]
     Indication: MUSCLE SPASMS
     Dosage: 800 MG, 1/2-1 TAB TWICE DAILY
  18. MAGNESIUM [Concomitant]
     Indication: PRODUCT USED FOR UNKNOWN INDICATION
     Dosage: 400 MG DAILY
  19. CO Q10 [Concomitant]
     Indication: PRODUCT USED FOR UNKNOWN INDICATION
     Dosage: 100 MG DAILY
  20. VITAMIN E [Concomitant]
     Indication: PRODUCT USED FOR UNKNOWN INDICATION
     Dosage: 400 IU DAILY
  21. FOLIC ACID [Concomitant]
     Indication: RHEUMATOID ARTHRITIS
     Dosage: 600 MCG DAILY
  22. B-COMPLEX [Concomitant]
     Indication: PRODUCT USED FOR UNKNOWN INDICATION
     Dosage: DAILY
  23. CALCIUM/VITAMIN D/VITAMIN K [Concomitant]
     Indication: STEROID THERAPY
     Dosage: 750 MG DAILY
  24. VITAMIN C [Concomitant]
     Indication: PRODUCT USED FOR UNKNOWN INDICATION
     Dosage: 500 MG DAILY

REACTIONS (1)
  - Injection site urticaria [Not Recovered/Not Resolved]
